FAERS Safety Report 4926285-0 (Version None)
Quarter: 2006Q1

REPORT INFORMATION
  Report Type: 
  Country: None (occurrence: None)
  Receive Date: 20060228
  Receipt Date: 20051230
  Transmission Date: 20060701
  Serious: No
  Sender: FDA-Public Use
  Company Number: US-GLAXOSMITHKLINE-A0587318A

PATIENT
  Age: 60 Year
  Sex: Male

DRUGS (12)
  1. LAMICTAL [Suspect]
     Indication: BIPOLAR DISORDER
     Dosage: 25MG PER DAY
     Route: 048
     Dates: start: 20051223, end: 20051223
  2. LIPITOR [Concomitant]
  3. ATENOLOL [Concomitant]
  4. VITAMIN B3 [Concomitant]
  5. ASPIRIN [Concomitant]
  6. DEPAKOTE [Concomitant]
  7. NEXIUM [Concomitant]
  8. MULTI-VITAMIN [Concomitant]
  9. CALCIUM GLUCONATE [Concomitant]
  10. MAGNESIUM [Concomitant]
  11. VITAMIN E [Concomitant]
  12. ASCORBIC ACID [Concomitant]

REACTIONS (1)
  - CONSTIPATION [None]
